FAERS Safety Report 6834985-0 (Version None)
Quarter: 2010Q3

REPORT INFORMATION
  Report Type: 
  Country: None (occurrence: None)
  Receive Date: 20100713
  Receipt Date: 20100706
  Transmission Date: 20110219
  Serious: Yes (Hospitalization)
  Sender: FDA-Public Use
  Company Number: US-BIOGENIDEC-2010BI021308

PATIENT
  Age: 40 Year
  Sex: Female

DRUGS (3)
  1. AVONEX [Suspect]
     Indication: MULTIPLE SCLEROSIS
     Route: 030
     Dates: start: 20070525, end: 20091001
  2. AVONEX [Suspect]
     Route: 030
     Dates: start: 20091001, end: 20091101
  3. AVONEX [Suspect]
     Route: 030
     Dates: start: 20100501

REACTIONS (6)
  - CHOROIDITIS [None]
  - HEADACHE [None]
  - PAIN [None]
  - SKIN LACERATION [None]
  - TREMOR [None]
  - VON WILLEBRAND'S DISEASE [None]
